FAERS Safety Report 18132060 (Version 1)
Quarter: 2020Q3

REPORT INFORMATION
  Report Type: Spontaneous
  Country: US (occurrence: US)
  Receive Date: 20200811
  Receipt Date: 20200811
  Transmission Date: 20201103
  Serious: Yes (Hospitalization)
  Sender: FDA-Public Use
  Company Number: US-RECORDATI RARE DISEASES-2088432

PATIENT
  Age: 36 Year
  Sex: Male

DRUGS (1)
  1. CARBAGLU [Suspect]
     Active Substance: CARGLUMIC ACID
     Indication: HYPERGLYCINAEMIA
     Dates: start: 20180607

REACTIONS (4)
  - Off label use [Unknown]
  - Diarrhoea [Unknown]
  - Product dose omission issue [Unknown]
  - Ammonia increased [Unknown]
